FAERS Safety Report 4975030-1 (Version None)
Quarter: 2006Q2

REPORT INFORMATION
  Report Type: 
  Country: None (occurrence: None)
  Receive Date: 20060418
  Receipt Date: 20060410
  Transmission Date: 20061013
  Serious: Yes (Death)
  Sender: FDA-Public Use
  Company Number: AT-JNJFOC-20060402115

PATIENT
  Age: 51 Year
  Sex: Female
  Weight: 85 kg

DRUGS (1)
  1. RISPERDAL CONSTA [Suspect]
     Route: 030

REACTIONS (1)
  - CARDIAC FAILURE [None]
